FAERS Safety Report 6082669-1 (Version None)
Quarter: 2009Q1

REPORT INFORMATION
  Report Type: 
  Country: None (occurrence: None)
  Receive Date: 20090218
  Receipt Date: 20090209
  Transmission Date: 20090719
  Serious: Yes (Hospitalization)
  Sender: FDA-Public Use
  Company Number: PHHY2009BR04666

PATIENT
  Age: 85 Year
  Sex: Female
  Weight: 59 kg

DRUGS (6)
  1. STARLIX [Suspect]
     Indication: DIABETES MELLITUS
     Dosage: 1/2 TAB DAILY
     Route: 048
  2. STARLIX [Suspect]
     Dosage: 1 TAB/DAY
     Route: 048
  3. MODURETIC 5-50 [Concomitant]
     Indication: HYPERTENSION
     Dosage: 1 TAB/DAY
     Route: 048
  4. MODURETIC 5-50 [Concomitant]
     Indication: URINARY RETENTION
  5. MAREVAN [Concomitant]
     Indication: COAGULOPATHY
     Dosage: 1 TAB/DAY
     Route: 048
  6. RETEMIC UD [Concomitant]
     Indication: CYSTITIS
     Dosage: 1 TAB/DAY
     Route: 048

REACTIONS (2)
  - BALANCE DISORDER [None]
  - CEREBROVASCULAR ACCIDENT [None]
